FAERS Safety Report 9775204 (Version 3)
Quarter: 2014Q1

REPORT INFORMATION
  Report Type: Spontaneous
  Country: US (occurrence: US)
  Receive Date: 20131220
  Receipt Date: 20140116
  Transmission Date: 20141002
  Serious: Yes (Death)
  Sender: FDA-Public Use
  Company Number: US-GALDERMA-US13002983

PATIENT
  Age: 56 Year
  Sex: Male

DRUGS (1)
  1. MIRVASO (BRIMONIDINE) TOPICAL GEL, 0.33% [Suspect]
     Indication: FLUSHING
     Dosage: 0.33%
     Route: 061
     Dates: start: 20130919

REACTIONS (7)
  - Death [Fatal]
  - Vascular pain [Recovered/Resolved]
  - Sensation of blood flow [Recovered/Resolved]
  - Vasoconstriction [Recovered/Resolved]
  - Condition aggravated [Recovered/Resolved]
  - Skin irritation [Recovered/Resolved]
  - Off label use [Unknown]
